FAERS Safety Report 17055091 (Version 1)
Quarter: 2019Q4

REPORT INFORMATION
  Report Type: Report from Study
  Country: MX (occurrence: MX)
  Receive Date: 20191120
  Receipt Date: 20191120
  Transmission Date: 20200122
  Serious: Yes (Other)
  Sender: FDA-Public Use
  Company Number: NVSC2019MX041543

PATIENT
  Sex: Female
  Weight: 94 kg

DRUGS (1)
  1. CO-DIOVAN [Suspect]
     Active Substance: HYDROCHLOROTHIAZIDE\VALSARTAN
     Indication: HYPERTENSION
     Dosage: 0.5 DF, QD (320/25 MG)
     Route: 048
     Dates: start: 20191117

REACTIONS (3)
  - Product prescribing error [Unknown]
  - Cerebral ischaemia [Unknown]
  - Wrong technique in product usage process [Unknown]
